FAERS Safety Report 6889741-4 (Version None)
Quarter: 2010Q3

REPORT INFORMATION
  Report Type: 
  Country: None (occurrence: None)
  Receive Date: 20100730
  Receipt Date: 20080425
  Transmission Date: 20110219
  Serious: No
  Sender: FDA-Public Use
  Company Number: US-PFIZER INC-2008036199

PATIENT
  Sex: Male
  Weight: 100 kg

DRUGS (6)
  1. LIPITOR [Suspect]
     Indication: BLOOD CHOLESTEROL INCREASED
     Dates: start: 19970101
  2. LORTAB [Concomitant]
  3. ACETYLSALICYLIC ACID SRT [Concomitant]
  4. FOLIC ACID [Concomitant]
  5. WELLBUTRIN [Concomitant]
  6. CALCIUM CARBONATE [Concomitant]

REACTIONS (1)
  - HEADACHE [None]
